FAERS Safety Report 18483777 (Version 2)
Quarter: 2020Q4

REPORT INFORMATION
  Report Type: Report from Study
  Country: GB (occurrence: GB)
  Receive Date: 20201110
  Receipt Date: 20201208
  Transmission Date: 20210114
  Serious: Yes (Hospitalization)
  Sender: FDA-Public Use
  Company Number: GB-REGENERON PHARMACEUTICALS, INC.-2020-87496

PATIENT

DRUGS (4)
  1. EYLEA [Suspect]
     Active Substance: AFLIBERCEPT
     Indication: NEOVASCULAR AGE-RELATED MACULAR DEGENERATION
     Dosage: 50 ?L, ONCE RIGHT EYE
     Route: 031
     Dates: start: 20191122, end: 20191122
  2. EYLEA [Suspect]
     Active Substance: AFLIBERCEPT
     Dosage: 50 ?L, ONCE RIGHT EYE
     Route: 031
     Dates: start: 20191220, end: 20191220
  3. EYLEA [Suspect]
     Active Substance: AFLIBERCEPT
     Dosage: 50 ?L, ONCE RIGHT EYE
     Route: 031
     Dates: start: 20200317, end: 20200317
  4. EYLEA [Suspect]
     Active Substance: AFLIBERCEPT
     Dosage: 50 ?L, ONCE RIGHT EYE
     Route: 031
     Dates: start: 20200122, end: 20200122

REACTIONS (1)
  - Ulcerative keratitis [Not Recovered/Not Resolved]

NARRATIVE: CASE EVENT DATE: 20200409
